FAERS Safety Report 21289831 (Version 1)
Quarter: 2022Q3

REPORT INFORMATION
  Report Type: Report from Study
  Country: US (occurrence: US)
  Receive Date: 20220902
  Receipt Date: 20220902
  Transmission Date: 20221026
  Serious: Yes (Other)
  Sender: FDA-Public Use
  Company Number: US-NOVARTISPH-NVSC2022US195154

PATIENT
  Age: 69 Year
  Sex: Female
  Weight: 49 kg

DRUGS (3)
  1. LAMPRENE [Suspect]
     Active Substance: CLOFAZIMINE
     Indication: Mycobacterium avium complex infection
     Dosage: 100 MG, QD
     Route: 048
     Dates: start: 20211111
  2. AMIKACIN [Concomitant]
     Active Substance: AMIKACIN
     Indication: Product used for unknown indication
  3. ALBUTEROL [Concomitant]
     Active Substance: ALBUTEROL
     Indication: Product used for unknown indication
     Route: 065

REACTIONS (15)
  - Epiglottitis [Unknown]
  - Dysphonia [Not Recovered/Not Resolved]
  - Night sweats [Not Recovered/Not Resolved]
  - Sputum discoloured [Not Recovered/Not Resolved]
  - Skin discolouration [Not Recovered/Not Resolved]
  - Sweat discolouration [Not Recovered/Not Resolved]
  - Chromaturia [Not Recovered/Not Resolved]
  - Wheezing [Unknown]
  - Balance disorder [Unknown]
  - Chronic sinusitis [Unknown]
  - Peripheral swelling [Recovered/Resolved]
  - Burning sensation [Unknown]
  - Osteoporosis [Not Recovered/Not Resolved]
  - Feeling jittery [Not Recovered/Not Resolved]
  - Joint swelling [Unknown]

NARRATIVE: CASE EVENT DATE: 20211111
